FAERS Safety Report 11558383 (Version 3)
Quarter: 2016Q3

REPORT INFORMATION
  Report Type: Spontaneous
  Country: US (occurrence: US)
  Receive Date: 20150928
  Receipt Date: 20160715
  Transmission Date: 20161109
  Serious: Yes (Other)
  Sender: FDA-Public Use
  Company Number: US-PFIZER INC-2015318722

PATIENT
  Age: 15 Year
  Sex: Male

DRUGS (1)
  1. QUILLIVANT XR [Suspect]
     Active Substance: METHYLPHENIDATE HYDROCHLORIDE
     Indication: ATTENTION DEFICIT/HYPERACTIVITY DISORDER
     Dosage: 4 ML, 1X/DAY (20 MG (4 ML) ONCE DAILY IN AM)
     Route: 048
     Dates: start: 20150904, end: 20150916

REACTIONS (5)
  - Visual impairment [Recovered/Resolved]
  - Anxiety [Unknown]
  - Hallucination [Recovering/Resolving]
  - Hypoacusis [Recovered/Resolved]
  - Headache [Recovered/Resolved]

NARRATIVE: CASE EVENT DATE: 201509
